FAERS Safety Report 6716004-X (Version None)
Quarter: 2010Q2

REPORT INFORMATION
  Report Type: 
  Country: None (occurrence: None)
  Receive Date: 20100507
  Receipt Date: 20100428
  Transmission Date: 20101027
  Serious: Yes (Other)
  Sender: FDA-Public Use
  Company Number: US-JNJCH-2010010340

PATIENT
  Age: 62 Year
  Weight: 72.6 kg

DRUGS (2)
  1. BENADRYL CREAM EXTRA STRENGTH [Suspect]
     Indication: RASH
     Dosage: TEXT:UNSPECIFIED
     Route: 061
     Dates: start: 20100407, end: 20100412
  2. BUDESONIDE [Concomitant]
     Indication: COLITIS ULCERATIVE
     Dosage: TEXT:2MG 2X A DAY
     Route: 065

REACTIONS (2)
  - OFF LABEL USE [None]
  - RASH [None]
